FAERS Safety Report 4985983-3 (Version None)
Quarter: 2006Q2

REPORT INFORMATION
  Report Type: 
  Country: None (occurrence: None)
  Receive Date: 20060421
  Receipt Date: 20060413
  Transmission Date: 20061013
  Serious: Yes (Other)
  Sender: FDA-Public Use
  Company Number: 224084

PATIENT
  Age: 78 Year
  Sex: Male
  Weight: 55 kg

DRUGS (10)
  1. RITUXAN [Suspect]
     Indication: LYMPHOMA
     Dosage: 559 MG, INTRAVENOUS
     Route: 042
     Dates: start: 20040727, end: 20041102
  2. THERARUBICIN                  (PIRARUBICIN) [Suspect]
     Indication: LYMPHOMA
     Dosage: 44 MG, INTRAVENOUS
     Route: 042
     Dates: start: 20040806, end: 20041008
  3. CYCLOPHOSPHAMIDE [Suspect]
     Indication: LYMPHOMA
     Dosage: 740 MG, INTRAVENOUS
     Route: 042
     Dates: start: 20040806, end: 20041008
  4. ONCOVIN [Suspect]
     Indication: LYMPHOMA
     Dosage: 1.48 MG
     Dates: start: 20040806, end: 20041008
  5. PREDONINE (PREDNISOLONE, PREDNISOLONE ACETATE, PREDNISOLONE SODIUM SUC [Suspect]
     Indication: LYMPHOMA
     Dosage: 45 MG, ORAL
     Route: 048
     Dates: start: 20040806, end: 20041008
  6. POLARAMINE [Concomitant]
  7. IBUPROFEN [Concomitant]
  8. SEROTONE                (AZASETRON HYDROCHLORIDE) [Concomitant]
  9. DIFLUCAN [Concomitant]
  10. FAMOTIDINE [Concomitant]

REACTIONS (2)
  - MYELODYSPLASTIC SYNDROME [None]
  - MYELOID LEUKAEMIA [None]
